FAERS Safety Report 9978576 (Version 1)
Quarter: 2014Q1

REPORT INFORMATION
  Report Type: Report from Study
  Country: US (occurrence: US)
  Receive Date: 20140306
  Receipt Date: 20140306
  Transmission Date: 20141002
  Serious: No
  Sender: FDA-Public Use
  Company Number: US-ABBVIE-13P-163-1171571-00

PATIENT
  Age: 73 Year
  Sex: Female

DRUGS (7)
  1. HUMIRA [Suspect]
     Indication: CROHN^S DISEASE
     Dates: start: 20130930
  2. FUROSEMIDE [Concomitant]
     Indication: DIURETIC THERAPY
  3. ALLERGY PILL [Concomitant]
     Indication: PRODUCT USED FOR UNKNOWN INDICATION
  4. SYNTHROID [Concomitant]
     Indication: THYROID DISORDER
  5. ATORVASTATIN [Concomitant]
     Indication: BLOOD CHOLESTEROL
  6. CITALOPRAM HDR [Concomitant]
     Indication: DEPRESSION
  7. LOMOTIL [Concomitant]
     Indication: DIARRHOEA
     Dosage: HAD NOT USED IN A WHILE

REACTIONS (5)
  - Heart rate irregular [Not Recovered/Not Resolved]
  - Atrial fibrillation [Not Recovered/Not Resolved]
  - Asthenia [Not Recovered/Not Resolved]
  - Fatigue [Not Recovered/Not Resolved]
  - Diarrhoea [Not Recovered/Not Resolved]
